FAERS Safety Report 7359514-7 (Version None)
Quarter: 2011Q1

REPORT INFORMATION
  Report Type: 
  Country: None (occurrence: None)
  Receive Date: 20110317
  Receipt Date: 20091201
  Transmission Date: 20110831
  Serious: No
  Sender: FDA-Public Use
  Company Number: US-PFIZER INC-2009304916

PATIENT
  Sex: Female

DRUGS (4)
  1. CRESTOR [Suspect]
  2. NORVASC [Suspect]
  3. LIPITOR [Suspect]
  4. METOPROLOL [Suspect]

REACTIONS (4)
  - MUSCLE SPASMS [None]
  - HEART RATE INCREASED [None]
  - HEART RATE IRREGULAR [None]
  - TREMOR [None]
